FAERS Safety Report 6439937-0 (Version None)
Quarter: 2009Q4

REPORT INFORMATION
  Report Type: 
  Country: None (occurrence: None)
  Receive Date: 20091112
  Receipt Date: 20091112
  Transmission Date: 20100525
  Serious: Yes (Life-Threatening, Disabling, Other)
  Sender: FDA-Public Use
  Company Number: None

PATIENT
  Age: 53 Year
  Sex: Female
  Weight: 67.7 kg

DRUGS (1)
  1. PRINIVIL [Suspect]
     Indication: HYPERTENSION
     Dosage: 10MG ONE DAILY ORAL 047 15 YEARS PLUS
     Route: 048

REACTIONS (3)
  - ANXIETY [None]
  - HYPERSENSITIVITY [None]
  - NERVE INJURY [None]
